FAERS Safety Report 9227331 (Version 2)
Quarter: 2013Q2

REPORT INFORMATION
  Report Type: Spontaneous
  Country: CA (occurrence: CA)
  Receive Date: 20130412
  Receipt Date: 20130422
  Transmission Date: 20140414
  Serious: Yes (Death, Hospitalization)
  Sender: FDA-Public Use
  Company Number: PHHY2013CA035338

PATIENT
  Age: 55 Year
  Sex: Female

DRUGS (8)
  1. AFINITOR [Suspect]
     Indication: BREAST CANCER
  2. AFINITOR [Suspect]
     Dosage: 5 MG, DAILY
     Route: 048
     Dates: start: 20130228, end: 20130401
  3. EXEMESTANE [Concomitant]
     Dosage: 25 MG
     Route: 048
  4. DENOSUMAB [Concomitant]
     Dosage: 120 MG, QMO
     Route: 058
  5. DEXAMETHASONE [Concomitant]
     Dosage: 4 MG, QID
  6. SEPTRA [Concomitant]
  7. VANCOMYCIN [Concomitant]
  8. MEROPENEM [Concomitant]

REACTIONS (6)
  - Interstitial lung disease [Fatal]
  - Pyrexia [Fatal]
  - Dyspnoea [Fatal]
  - Respiratory depression [Fatal]
  - Drug ineffective [Unknown]
  - Platelet count decreased [Unknown]
